FAERS Safety Report 8347536-9 (Version None)
Quarter: 2012Q2

REPORT INFORMATION
  Report Type: 
  Country: None (occurrence: None)
  Receive Date: 20120509
  Receipt Date: 20120427
  Transmission Date: 20120825
  Serious: No
  Sender: FDA-Public Use
  Company Number: US-BAYER-2012-043896

PATIENT
  Age: 74 Year
  Sex: Female
  Weight: 62 kg

DRUGS (10)
  1. TAMOXIFEN CITRATE [Concomitant]
  2. SPIRIVA [Concomitant]
  3. SEROQUEL [Concomitant]
  4. GLUCOSAMINE [Concomitant]
  5. NAPROXEN SODIUM [Suspect]
     Indication: ARTHRITIS
     Dosage: 2 DF, PRN
     Route: 048
  6. CORAL CALCIUM [Concomitant]
  7. CITALOPRAM [Concomitant]
  8. THYROID THERAPY [Concomitant]
  9. METHYLSULFONYLMETHANE [Concomitant]
  10. ASPIRIN [Concomitant]
     Indication: ANALGESIC THERAPY

REACTIONS (1)
  - NO ADVERSE EVENT [None]
